FAERS Safety Report 6545943-8 (Version None)
Quarter: 2010Q1

REPORT INFORMATION
  Report Type: 
  Country: None (occurrence: None)
  Receive Date: 20100121
  Receipt Date: 20100108
  Transmission Date: 20100710
  Serious: Yes (Life-Threatening)
  Sender: FDA-Public Use
  Company Number: JP-MERCK-1001USA00927

PATIENT
  Age: 61 Year
  Sex: Male

DRUGS (6)
  1. JANUVIA [Suspect]
     Indication: DIABETES MELLITUS
     Route: 048
     Dates: start: 20091226, end: 20091229
  2. EUGLUCON [Concomitant]
     Indication: DIABETES MELLITUS
     Route: 048
     Dates: start: 20090501
  3. KINEDAK [Concomitant]
     Indication: DIABETIC NEUROPATHY
     Route: 048
     Dates: start: 20090501
  4. CRESTOR [Concomitant]
     Indication: HYPERLIPIDAEMIA
     Route: 048
     Dates: start: 20090501
  5. AMLODIPINE BESYLATE [Concomitant]
     Indication: HYPERTENSION
     Route: 048
     Dates: start: 20090501
  6. COZAAR [Concomitant]
     Indication: HYPERTENSION
     Route: 048
     Dates: start: 20090501

REACTIONS (1)
  - HYPOGLYCAEMIA [None]
